FAERS Safety Report 22636252 (Version 2)
Quarter: 2023Q2

REPORT INFORMATION
  Report Type: Spontaneous
  Country: GB (occurrence: GB)
  Receive Date: 20230623
  Receipt Date: 20230629
  Transmission Date: 20230722
  Serious: Yes (Death, Other)
  Sender: FDA-Public Use
  Company Number: GB-TEVA-2023-GB-2899057

PATIENT

DRUGS (2)
  1. DOXORUBICIN [Suspect]
     Active Substance: DOXORUBICIN
     Indication: Product used for unknown indication
     Route: 064
  2. CYCLOPHOSPHAMIDE [Suspect]
     Active Substance: CYCLOPHOSPHAMIDE
     Indication: Product used for unknown indication
     Route: 064

REACTIONS (5)
  - Death neonatal [Fatal]
  - Foetal exposure during pregnancy [Fatal]
  - Premature baby [Fatal]
  - Immunosuppression [Fatal]
  - Infection [Fatal]

NARRATIVE: CASE EVENT DATE: 20150101
